FAERS Safety Report 10893281 (Version 2)
Quarter: 2015Q2

REPORT INFORMATION
  Report Type: Spontaneous
  Country: US (occurrence: US)
  Receive Date: 20150306
  Receipt Date: 20150622
  Transmission Date: 20150821
  Serious: Yes (Hospitalization, Other)
  Sender: FDA-Public Use
  Company Number: US-ELI_LILLY_AND_COMPANY-US201502008473

PATIENT
  Sex: Female
  Weight: 75.28 kg

DRUGS (14)
  1. HUMULIN N [Suspect]
     Active Substance: INSULIN HUMAN
     Dosage: UNK UNK, BID
     Route: 065
     Dates: start: 1995
  2. SINGULAIR [Concomitant]
     Active Substance: MONTELUKAST SODIUM
     Dosage: 1 DF, EACH EVENING
  3. VITAMIN D3 [Concomitant]
     Active Substance: CHOLECALCIFEROL
     Dosage: 3000 U, QD
  4. PROZAC [Concomitant]
     Active Substance: FLUOXETINE HYDROCHLORIDE
     Dosage: 80 MG, QD
  5. ASPIRIN                            /00002701/ [Concomitant]
     Active Substance: ASPIRIN
  6. NEURONTIN [Concomitant]
     Active Substance: GABAPENTIN
     Dosage: 600 MG, EACH EVENING
  7. HUMULIN N [Suspect]
     Active Substance: INSULIN HUMAN
     Indication: TYPE 2 DIABETES MELLITUS
     Dosage: 5 U, BID
     Route: 065
     Dates: start: 1995
  8. OXYCODONE [Concomitant]
     Active Substance: OXYCODONE
     Dosage: 2 DF, EACH EVENING
  9. OXYCODONE [Concomitant]
     Active Substance: OXYCODONE
     Dosage: 1 DF, EACH MORNING
  10. NAPROXEN. [Concomitant]
     Active Substance: NAPROXEN
     Dosage: 500 MG, BID
  11. NEURONTIN [Concomitant]
     Active Substance: GABAPENTIN
     Dosage: 300 MG, EACH MORNING
  12. METFORMIN [Concomitant]
     Active Substance: METFORMIN HYDROCHLORIDE
     Dosage: 1000 MG, EACH EVENING
  13. ALBUTEROL                          /00139501/ [Concomitant]
     Active Substance: ALBUTEROL
     Dosage: 2 DF, PRN
  14. PRED FORTE [Concomitant]
     Active Substance: PREDNISOLONE ACETATE

REACTIONS (11)
  - Fall [Recovered/Resolved]
  - Fall [Unknown]
  - Gait disturbance [Unknown]
  - Medication error [Unknown]
  - Carpal tunnel syndrome [Unknown]
  - Balance disorder [Recovered/Resolved]
  - Back injury [Recovered/Resolved]
  - Nasopharyngitis [Recovering/Resolving]
  - Musculoskeletal disorder [Not Recovered/Not Resolved]
  - Ear disorder [Recovered/Resolved]
  - Back disorder [Not Recovered/Not Resolved]

NARRATIVE: CASE EVENT DATE: 2010
